FAERS Safety Report 13642553 (Version 4)
Quarter: 2017Q3

REPORT INFORMATION
  Report Type: Spontaneous
  Country: FR (occurrence: FR)
  Receive Date: 20170612
  Receipt Date: 20170816
  Transmission Date: 20171127
  Serious: Yes (Hospitalization, Other)
  Sender: FDA-Public Use
  Company Number: FR-AUROBINDO-AUR-APL-2017-35234

PATIENT
  Age: 83 Year
  Sex: Male
  Weight: 52 kg

DRUGS (8)
  1. DIGOXIN. [Suspect]
     Active Substance: DIGOXIN
     Indication: EJECTION FRACTION DECREASED
     Dosage: 0.25 MG, UNK
     Route: 065
  2. RAMPRIL [Concomitant]
     Active Substance: RAMIPRIL
     Indication: CARDIAC FAILURE
  3. BISOPROLOL [Suspect]
     Active Substance: BISOPROLOL
     Indication: EJECTION FRACTION DECREASED
     Dosage: 2.5 MG, UNK
     Route: 065
  4. BISOPROLOL [Suspect]
     Active Substance: BISOPROLOL
     Indication: CARDIAC FAILURE
  5. FUROSEMIDE. [Concomitant]
     Active Substance: FUROSEMIDE
     Indication: EJECTION FRACTION DECREASED
     Dosage: 40 MG, UNK
  6. RAMPRIL [Concomitant]
     Active Substance: RAMIPRIL
     Indication: EJECTION FRACTION DECREASED
     Dosage: 1.25 MG, UNK
  7. DIGOXIN. [Suspect]
     Active Substance: DIGOXIN
     Indication: CARDIAC FAILURE
  8. FUROSEMIDE. [Concomitant]
     Active Substance: FUROSEMIDE
     Indication: CARDIAC FAILURE

REACTIONS (11)
  - Atrial fibrillation [Recovering/Resolving]
  - Vomiting [Recovering/Resolving]
  - Acute kidney injury [Recovering/Resolving]
  - Bradycardia [Recovering/Resolving]
  - Toxicity to various agents [Recovering/Resolving]
  - Abdominal pain [Recovering/Resolving]
  - General physical health deterioration [Recovering/Resolving]
  - Overdose [Recovering/Resolving]
  - Electrocardiogram ST segment depression [Recovering/Resolving]
  - Hypotension [Recovering/Resolving]
  - Oedema peripheral [Recovering/Resolving]
